FAERS Safety Report 5590901-3 (Version None)
Quarter: 2007Q4

REPORT INFORMATION
  Report Type: 
  Country: None (occurrence: None)
  Receive Date: 20071214
  Receipt Date: 20070216
  Transmission Date: 20080405
  Serious: Yes (Other)
  Sender: FDA-Public Use
  Company Number: PHEH2007US02092

PATIENT
  Age: 51 Year
  Sex: Female

DRUGS (7)
  1. SANDOSTATIN [Suspect]
     Indication: DIARRHOEA
     Dosage: 100 UG, QD, SUBCUTANEOUS ; 100 UG, BID, SUBCUTANEOUS ; 100 UG, QD, SUBCUTANEOUS
     Route: 058
     Dates: start: 20070212, end: 20070212
  2. SANDOSTATIN [Suspect]
     Indication: DIARRHOEA
     Dosage: 100 UG, QD, SUBCUTANEOUS ; 100 UG, BID, SUBCUTANEOUS ; 100 UG, QD, SUBCUTANEOUS
     Route: 058
     Dates: start: 20070213, end: 20070214
  3. SANDOSTATIN [Suspect]
     Indication: DIARRHOEA
     Dosage: 100 UG, QD, SUBCUTANEOUS ; 100 UG, BID, SUBCUTANEOUS ; 100 UG, QD, SUBCUTANEOUS
     Route: 058
     Dates: start: 20070215, end: 20070215
  4. CARBOPLATIN [Concomitant]
  5. TAXOL [Concomitant]
  6. ZOFRAN [Concomitant]
  7. NEULASTA [Concomitant]

REACTIONS (3)
  - BRADYCARDIA [None]
  - ELECTROCARDIOGRAM QT PROLONGED [None]
  - HYPOTENSION [None]
